FAERS Safety Report 5100042-7 (Version None)
Quarter: 2006Q3

REPORT INFORMATION
  Report Type: 
  Country: None (occurrence: None)
  Receive Date: 20060908
  Receipt Date: 20060831
  Transmission Date: 20061208
  Serious: Yes (Hospitalization)
  Sender: FDA-Public Use
  Company Number: 2006UW17253

PATIENT
  Age: 81 Year
  Sex: Female

DRUGS (8)
  1. PLENDIL [Suspect]
     Indication: BLOOD PRESSURE
     Route: 048
  2. APO-ATENOLOL [Concomitant]
     Indication: CARDIAC DISORDER
  3. AVAPRO [Concomitant]
     Indication: BLOOD PRESSURE
     Route: 048
  4. APO-FUROSEMIDE [Concomitant]
     Indication: BLOOD PRESSURE
  5. VITAMIN E [Concomitant]
     Route: 048
  6. CALCIUM GLUCONATE [Concomitant]
     Route: 048
  7. POTASSIUM [Concomitant]
     Route: 048
  8. CRANBERRY SUPPLEMENT [Concomitant]
     Indication: CYSTITIS
     Route: 048

REACTIONS (3)
  - CYSTITIS [None]
  - INCREASED UPPER AIRWAY SECRETION [None]
  - KIDNEY INFECTION [None]
